FAERS Safety Report 9144328 (Version 1)
Quarter: 2013Q1

REPORT INFORMATION
  Report Type: Spontaneous
  Country: FR (occurrence: FR)
  Receive Date: 20130306
  Receipt Date: 20130306
  Transmission Date: 20140127
  Serious: Yes (Life-Threatening, Hospitalization, Other)
  Sender: FDA-Public Use
  Company Number: FR-ROCHE-GNE315719

PATIENT
  Age: 64 Year
  Sex: Male

DRUGS (13)
  1. LUCENTIS [Suspect]
     Indication: AGE-RELATED MACULAR DEGENERATION
     Dosage: UNK
     Route: 050
     Dates: start: 200803
  2. LUCENTIS [Suspect]
     Dosage: UNK
     Route: 050
  3. LUCENTIS [Suspect]
     Dosage: UNK
     Route: 050
  4. LUCENTIS [Suspect]
     Dosage: UNK
     Route: 050
  5. LUCENTIS [Suspect]
     Dosage: UNK
     Route: 050
  6. LUCENTIS [Suspect]
     Dosage: UNK
     Route: 050
     Dates: start: 20100901
  7. PLAVIX [Suspect]
     Indication: PRODUCT USED FOR UNKNOWN INDICATION
     Route: 065
  8. ASPEGIC [Suspect]
     Indication: PRODUCT USED FOR UNKNOWN INDICATION
     Route: 065
  9. FONZYLANE [Suspect]
     Indication: PRODUCT USED FOR UNKNOWN INDICATION
     Route: 065
  10. EZETROL [Suspect]
     Indication: PRODUCT USED FOR UNKNOWN INDICATION
     Route: 065
  11. TAHOR [Suspect]
     Indication: PRODUCT USED FOR UNKNOWN INDICATION
     Route: 065
  12. DETENSIEL [Suspect]
     Indication: PRODUCT USED FOR UNKNOWN INDICATION
     Route: 065
  13. COVERAM [Suspect]
     Indication: PRODUCT USED FOR UNKNOWN INDICATION
     Route: 065

REACTIONS (3)
  - Cardiac arrest [Recovered/Resolved with Sequelae]
  - Atrial fibrillation [Recovered/Resolved]
  - Ventricular fibrillation [None]
